FAERS Safety Report 8037271 (Version 2)
Quarter: 2013Q2

REPORT INFORMATION
  Report Type: Spontaneous
  Country: US (occurrence: None)
  Receive Date: 20110707
  Receipt Date: 20120705
  Transmission Date: 20140414
  Serious: Yes (Hospitalization, Other)
  Sender: FDA-Public Use
  Company Number: US-CYPR-2010-000010

PATIENT
  Age: 61 Year
  Sex: Male
  Weight: 94.35 kg

DRUGS (7)
  1. CLOPIDOGREL [Suspect]
     Indication: ANTIPLATELET THERAPY
     Dosage: 75 MG QD ORAL
     Route: 048
     Dates: start: 20101029, end: 20110113
  2. ASPIRIN [Suspect]
     Indication: THROMBOSIS PROPHYLAXIS
     Dosage: 81 MG QD ORAL
     Route: 048
     Dates: start: 20090907
  3. CRESTOR [Concomitant]
  4. CYPHER STENT [Concomitant]
  5. CYPHER STENT (2) [Concomitant]
  6. CYPHER STENT (3) [Concomitant]
  7. CYPHER STENT (4) [Concomitant]

REACTIONS (2)
  - CORONARY REVASCULARISATION [None]
  - Coronary artery stenosis [None]
